FAERS Safety Report 25123586 (Version 1)
Quarter: 2025Q1

REPORT INFORMATION
  Report Type: Spontaneous
  Country: US (occurrence: US)
  Receive Date: 20250326
  Receipt Date: 20250326
  Transmission Date: 20250408
  Serious: Yes (Hospitalization)
  Sender: GRIFOLS
  Company Number: US-IGSA-BIG0030264

PATIENT
  Sex: Female
  Weight: 45.4 kg

DRUGS (21)
  1. PROLASTIN-C LIQUID [Suspect]
     Active Substance: .ALPHA.1-PROTEINASE INHIBITOR HUMAN
     Indication: Alpha-1 antitrypsin deficiency
     Dosage: 3126 MILLIGRAM, Q.WK.
     Route: 042
  2. BUPRENORPHINE [Concomitant]
     Active Substance: BUPRENORPHINE
  3. ALBUTEROL SULFATE [Concomitant]
     Active Substance: ALBUTEROL SULFATE
  4. KLONOPIN [Concomitant]
     Active Substance: CLONAZEPAM
  5. OMEPRAZOLE [Concomitant]
     Active Substance: OMEPRAZOLE
  6. LAMICTAL [Concomitant]
     Active Substance: LAMOTRIGINE
  7. FERROUS GLUCONATE [Concomitant]
     Active Substance: FERROUS GLUCONATE
  8. TRANSDERM SCOP [Concomitant]
     Active Substance: SCOPOLAMINE
  9. LASIX [Concomitant]
     Active Substance: FUROSEMIDE
  10. CARBOXYMETHYLCELLULOSE SODIUM [Concomitant]
     Active Substance: CARBOXYMETHYLCELLULOSE SODIUM
  11. GOLYTELY [Concomitant]
     Active Substance: POLYETHYLENE GLYCOL 3350\POTASSIUM CHLORIDE\SODIUM BICARBONATE\SODIUM CHLORIDE\SODIUM SULFATE
  12. POTASSIUM CHLORIDE [Concomitant]
     Active Substance: POTASSIUM CHLORIDE
  13. CARAFATE [Concomitant]
     Active Substance: SUCRALFATE
  14. ALBUTEROL SULFATE [Concomitant]
     Active Substance: ALBUTEROL SULFATE
  15. REMERON [Concomitant]
     Active Substance: MIRTAZAPINE
  16. COREG [Concomitant]
     Active Substance: CARVEDILOL
  17. OXYGEN [Concomitant]
     Active Substance: OXYGEN
  18. EPINEPHRINE [Concomitant]
     Active Substance: EPINEPHRINE
  19. HEPARIN [Concomitant]
     Active Substance: HEPARIN SODIUM
  20. LIDOCAINE\PRILOCAINE [Concomitant]
     Active Substance: LIDOCAINE\PRILOCAINE
  21. DEXTROSE\SODIUM CHLORIDE [Concomitant]
     Active Substance: DEXTROSE\SODIUM CHLORIDE

REACTIONS (2)
  - Dyspnoea [Unknown]
  - Decreased appetite [Unknown]
